FAERS Safety Report 5025939-8 (Version None)
Quarter: 2006Q2

REPORT INFORMATION
  Report Type: 
  Country: None (occurrence: None)
  Receive Date: 20060614
  Receipt Date: 20060608
  Transmission Date: 20061013
  Serious: Yes (Death, Other)
  Sender: FDA-Public Use
  Company Number: DE-GLAXOSMITHKLINE-B0427223A

PATIENT
  Sex: Male

DRUGS (5)
  1. MELPHALAN [Suspect]
     Dosage: 150MGM2 UNKNOWN
     Route: 065
  2. FLUDARABINE [Suspect]
     Dosage: 30MGM2 PER DAY
     Route: 042
  3. POLYCHEMOTHERAPY [Concomitant]
     Route: 042
  4. CYCLOSPORINE [Concomitant]
     Route: 065
  5. ANTITHYMOCYTE [Concomitant]
     Dosage: 10MGK PER DAY
     Route: 065

REACTIONS (4)
  - GRAFT VERSUS HOST DISEASE IN INTESTINE [None]
  - GRAFT VERSUS HOST DISEASE IN SKIN [None]
  - MULTI-ORGAN FAILURE [None]
  - PNEUMONIA ASPERGILLUS [None]
